FAERS Safety Report 13047525 (Version 2)
Quarter: 2016Q4

REPORT INFORMATION
  Report Type: Spontaneous
  Country: DE (occurrence: DE)
  Receive Date: 20161220
  Receipt Date: 20161227
  Transmission Date: 20170207
  Serious: Yes (Hospitalization)
  Sender: FDA-Public Use
  Company Number: DE-ASTELLAS-2016US040829

PATIENT
  Sex: Male

DRUGS (3)
  1. XTANDI [Suspect]
     Active Substance: ENZALUTAMIDE
     Dosage: 80 MG, UNKNOWN FREQ
     Route: 065
     Dates: start: 20161005
  2. XTANDI [Suspect]
     Active Substance: ENZALUTAMIDE
     Indication: PROSTATE CANCER
     Dosage: 2 CAPSULES, ONCE DAILY (EVENING)
     Route: 065
  3. XTANDI [Suspect]
     Active Substance: ENZALUTAMIDE
     Dosage: 160 MG (4 DF), ONCE DAILY
     Route: 065

REACTIONS (10)
  - Nausea [Unknown]
  - Drug intolerance [Unknown]
  - Intentional underdose [Unknown]
  - Fatigue [Unknown]
  - Blood urine present [Unknown]
  - Pain [Unknown]
  - Drug ineffective [Unknown]
  - Ureteric obstruction [Unknown]
  - Vomiting [Unknown]
  - Prostatic specific antigen increased [Unknown]

NARRATIVE: CASE EVENT DATE: 2016
